FAERS Safety Report 25474508 (Version 2)
Quarter: 2025Q3

REPORT INFORMATION
  Report Type: Spontaneous
  Country: US (occurrence: US)
  Receive Date: 20250624
  Receipt Date: 20250704
  Transmission Date: 20251021
  Serious: Yes (Other)
  Sender: BAUSCH AND LOMB
  Company Number: US-BAUSCH-BL-2025-007757

PATIENT
  Age: 51 Year
  Sex: Female
  Weight: 80.5 kg

DRUGS (9)
  1. DEXAMETHASONE [Suspect]
     Active Substance: DEXAMETHASONE
     Indication: Hydrocephalus
     Route: 042
  2. ACETAZOLAMIDE [Suspect]
     Active Substance: ACETAZOLAMIDE
     Indication: Neurocysticercosis
     Route: 065
  3. ACETAZOLAMIDE [Suspect]
     Active Substance: ACETAZOLAMIDE
     Indication: Hydrocephalus
  4. ACETAZOLAMIDE [Suspect]
     Active Substance: ACETAZOLAMIDE
     Route: 065
  5. ACETAZOLAMIDE [Suspect]
     Active Substance: ACETAZOLAMIDE
     Route: 065
  6. ALBENDAZOLE [Concomitant]
     Active Substance: ALBENDAZOLE
     Indication: Neurocysticercosis
  7. ALBENDAZOLE [Concomitant]
     Active Substance: ALBENDAZOLE
     Route: 065
  8. PRAZIQUANTEL [Concomitant]
     Active Substance: PRAZIQUANTEL
     Indication: Neurocysticercosis
  9. PRAZIQUANTEL [Concomitant]
     Active Substance: PRAZIQUANTEL
     Dosage: THREE TIMES DAILY BASED ON A WEIGHT OF 80.5 KILOGRAMS
     Route: 065

REACTIONS (1)
  - Hypokalaemia [Unknown]
